FAERS Safety Report 4810109-6 (Version None)
Quarter: 2005Q4

REPORT INFORMATION
  Report Type: 
  Country: None (occurrence: None)
  Receive Date: 20051024
  Receipt Date: 20051012
  Transmission Date: 20060501
  Serious: Yes (Disabling, Other)
  Sender: FDA-Public Use
  Company Number: 2005138963

PATIENT
  Age: 33 Year
  Sex: Female

DRUGS (8)
  1. XALATAN [Suspect]
     Indication: GLAUCOMA
     Dates: start: 20040825
  2. TIMPILO [Suspect]
     Indication: GLAUCOMA
     Dates: start: 20040825
  3. TRUSOPT [Suspect]
     Indication: GLAUCOMA
     Dates: start: 20040825
  4. TIMPILO (PILOCARPINE HYDROCHLORIDE, TIMOLOL MALEATE) [Concomitant]
  5. AZOPT [Concomitant]
  6. ALL OTHER THERAPEUTIC PRODUCTS (ALL OTHER THERAPEUTIC PRODUCTS) [Concomitant]
  7. DORZOLAMIDE HYDROCHLORIDE/TIMOLOL MALEATE (DORZOLAMIDE HYDROCHLORIDE, [Concomitant]
  8. TRAVOPROST (TRAVOPROST) [Concomitant]

REACTIONS (6)
  - EYE PAIN [None]
  - FATIGUE [None]
  - HEADACHE [None]
  - INTRAOCULAR PRESSURE INCREASED [None]
  - OPTIC NERVE INJURY [None]
  - VISUAL FIELD DEFECT [None]
